FAERS Safety Report 4862136-0 (Version None)
Quarter: 2005Q4

REPORT INFORMATION
  Report Type: 
  Country: None (occurrence: None)
  Receive Date: 20051221
  Receipt Date: 20051209
  Transmission Date: 20060501
  Serious: Yes (Other)
  Sender: FDA-Public Use
  Company Number: CA-BRISTOL-MYERS SQUIBB COMPANY-13219076

PATIENT
  Age: 75 Year
  Sex: Male

DRUGS (9)
  1. TEQUIN [Suspect]
  2. BUDESONIDE [Concomitant]
  3. CITALOPRAM HYDROBROMIDE [Concomitant]
     Route: 048
  4. DIGOXIN [Concomitant]
  5. DILTIAZEM HCL [Concomitant]
     Route: 048
  6. IPRATROPIUM BROMIDE [Concomitant]
     Route: 055
  7. LORAZEPAM [Concomitant]
  8. QUINAPRIL [Concomitant]
     Route: 048
  9. SIMVASTATIN [Concomitant]
     Route: 048

REACTIONS (1)
  - HYPOGLYCAEMIA [None]
